FAERS Safety Report 26065867 (Version 1)
Quarter: 2025Q4

REPORT INFORMATION
  Report Type: Report from Study
  Country: CA (occurrence: None)
  Receive Date: 20251119
  Receipt Date: 20251119
  Transmission Date: 20260118
  Serious: Yes (Death)
  Sender: UCB
  Company Number: CA-UCBSA-2025071885

PATIENT
  Age: 62 Year

DRUGS (4)
  1. BIMEKIZUMAB [Suspect]
     Active Substance: BIMEKIZUMAB
     Indication: Psoriasis
     Dosage: 320 MILLIGRAM, EV 8 WEEKS
  2. metphormen [Concomitant]
     Indication: Diabetes mellitus
  3. ZOPICLONE [Concomitant]
     Active Substance: ZOPICLONE
     Indication: Diabetes mellitus
  4. ramiphril [Concomitant]
     Indication: Diabetes mellitus

REACTIONS (1)
  - Neoplasm malignant [Fatal]
